FAERS Safety Report 17817893 (Version 1)
Quarter: 2020Q2

REPORT INFORMATION
  Report Type: Spontaneous
  Country: GB (occurrence: GB)
  Receive Date: 20200522
  Receipt Date: 20200522
  Transmission Date: 20200714
  Serious: Yes (Other)
  Sender: FDA-Public Use
  Company Number: GB-MYLANLABS-2020M1050521

PATIENT
  Age: 70 Year
  Sex: Male
  Weight: 88 kg

DRUGS (13)
  1. CICLESONIDE [Concomitant]
     Active Substance: CICLESONIDE
  2. FEXOFENADINE HYDROCHLORIDE. [Concomitant]
     Active Substance: FEXOFENADINE HYDROCHLORIDE
  3. FOSTAIR [Concomitant]
     Active Substance: BECLOMETHASONE\FORMOTEROL
  4. ITRACONAZOLE. [Suspect]
     Active Substance: ITRACONAZOLE
     Indication: SEVERE ASTHMA WITH FUNGAL SENSITISATION
     Dosage: 400 MILLIGRAM, QD
     Route: 048
     Dates: start: 20190101, end: 20191015
  5. TIOTROPIUM [Concomitant]
     Active Substance: TIOTROPIUM
  6. MONTELUKAST SODIUM. [Concomitant]
     Active Substance: MONTELUKAST SODIUM
  7. AMLODIPINE [Concomitant]
     Active Substance: AMLODIPINE BESYLATE
  8. TRIMETHOPRIM. [Concomitant]
     Active Substance: TRIMETHOPRIM
  9. SALBUTAMOL [Concomitant]
     Active Substance: ALBUTEROL
  10. SIMVASTATIN. [Concomitant]
     Active Substance: SIMVASTATIN
  11. FINASTERIDE. [Concomitant]
     Active Substance: FINASTERIDE
  12. PHYLLOCONTIN [Concomitant]
     Active Substance: AMINOPHYLLINE
  13. TAMSULOSIN [Concomitant]
     Active Substance: TAMSULOSIN

REACTIONS (2)
  - Hypokalaemia [Recovered/Resolved]
  - Hypophosphataemia [Recovered/Resolved]

NARRATIVE: CASE EVENT DATE: 20190801
